FAERS Safety Report 8391001-X (Version None)
Quarter: 2012Q2

REPORT INFORMATION
  Report Type: 
  Country: None (occurrence: None)
  Receive Date: 20120529
  Receipt Date: 20120518
  Transmission Date: 20120825
  Serious: Yes (Other)
  Sender: FDA-Public Use
  Company Number: CA-JNJFOC-20120517372

PATIENT
  Sex: Female
  Weight: 62 kg

DRUGS (5)
  1. METHOTREXATE [Concomitant]
     Route: 048
  2. REMICADE [Suspect]
     Indication: RHEUMATOID ARTHRITIS
     Route: 042
  3. CYCLOBENAZPRINE [Concomitant]
     Route: 048
  4. EURO FOLIC [Concomitant]
     Route: 048
  5. OXYCONTIN [Concomitant]
     Route: 048

REACTIONS (2)
  - OEDEMA PERIPHERAL [None]
  - OCULAR ICTERUS [None]
